FAERS Safety Report 8852534 (Version 4)
Quarter: 2013Q4

REPORT INFORMATION
  Report Type: Report from Study
  Country: JP (occurrence: JP)
  Receive Date: 20121022
  Receipt Date: 20131101
  Transmission Date: 20140711
  Serious: Yes (Hospitalization, Other)
  Sender: FDA-Public Use
  Company Number: JP-VERTEX PHARMACEUTICAL INC.-AE-2012-007991

PATIENT
  Age: 69 Year
  Sex: Female

DRUGS (8)
  1. VX-950 (TELAPREVIR) [Suspect]
     Indication: CHRONIC HEPATITIS C
     Dosage: 1500 MG, QD
     Route: 048
     Dates: start: 20120406, end: 20120518
  2. REBETOL [Suspect]
     Indication: CHRONIC HEPATITIS C
     Dosage: 600 MG, QD
     Route: 048
     Dates: start: 20120406, end: 20120510
  3. REBETOL [Suspect]
     Dosage: 200 MG, QD
     Route: 048
     Dates: start: 20120511, end: 20120518
  4. REBETOL [Suspect]
     Dosage: 200 MG, QD
     Route: 048
     Dates: start: 20120622
  5. PEGINTRON [Suspect]
     Indication: CHRONIC HEPATITIS C
     Dosage: 1.5 ?G/KG, QW
     Route: 058
     Dates: start: 20120406, end: 20120608
  6. LOXOPROFEN [Concomitant]
     Dosage: 180 MG, QD
     Route: 048
     Dates: start: 20120406
  7. SELBEX [Concomitant]
     Dosage: 150 MG, QD
     Route: 048
     Dates: start: 20120406
  8. MYSLEE [Concomitant]
     Dosage: 10 MG, QD
     Route: 048
     Dates: start: 20120427, end: 20120830

REACTIONS (2)
  - Malaise [Recovered/Resolved]
  - Haemoglobin decreased [Recovered/Resolved]
